FAERS Safety Report 7483855-6 (Version None)
Quarter: 2011Q2

REPORT INFORMATION
  Report Type: 
  Country: None (occurrence: None)
  Receive Date: 20110517
  Receipt Date: 20110504
  Transmission Date: 20111010
  Serious: Yes (Hospitalization, Other)
  Sender: FDA-Public Use
  Company Number: US-ELI_LILLY_AND_COMPANY-US201104004765

PATIENT
  Sex: Female

DRUGS (13)
  1. FORTEO [Suspect]
     Indication: OSTEOPOROSIS
     Dosage: 20 UG, QD
     Route: 065
     Dates: start: 20101101
  2. METOPROLOL SUCCINATE [Concomitant]
     Dosage: UNK, UNKNOWN
     Route: 065
  3. BETA BLOCKING AGENTS [Concomitant]
     Dosage: UNK, UNKNOWN
     Route: 065
  4. SEROQUEL [Concomitant]
     Dosage: UNK, UNKNOWN
     Route: 065
  5. FORTEO [Suspect]
     Dosage: 20 UG, QD
  6. PEPCID [Concomitant]
  7. NORVASC [Concomitant]
  8. XANAX [Concomitant]
  9. FENTANYL [Concomitant]
     Dosage: UNK, UNKNOWN
     Route: 065
  10. DIOVAN [Concomitant]
  11. MEGACE [Concomitant]
     Dosage: UNK, UNKNOWN
     Route: 065
  12. TOPROL-XL [Concomitant]
  13. LORTAB [Concomitant]
     Dosage: UNK, UNKNOWN
     Route: 065

REACTIONS (5)
  - MALNUTRITION [None]
  - ANAEMIA [None]
  - DECREASED APPETITE [None]
  - MALAISE [None]
  - KNEE ARTHROPLASTY [None]
